FAERS Safety Report 9894169 (Version 1)
Quarter: 2014Q1

REPORT INFORMATION
  Report Type: Spontaneous
  Country: US (occurrence: US)
  Receive Date: 20140213
  Receipt Date: 20140213
  Transmission Date: 20141002
  Serious: Yes (Hospitalization, Other)
  Sender: FDA-Public Use
  Company Number: US-TEVA-462414USA

PATIENT
  Age: 65 Year
  Sex: Male

DRUGS (2)
  1. AMIODARONE [Suspect]
     Indication: ATRIAL FIBRILLATION
     Route: 065
  2. DABIGATRAN ETEXILATE [Interacting]
     Indication: ANTICOAGULANT THERAPY
     Route: 065

REACTIONS (5)
  - Gastric haemorrhage [Recovering/Resolving]
  - Toxicity to various agents [Recovering/Resolving]
  - Drug interaction [Recovering/Resolving]
  - Cardiac failure [Unknown]
  - Intracardiac thrombus [Unknown]
